FAERS Safety Report 6323566-3 (Version None)
Quarter: 2009Q3

REPORT INFORMATION
  Report Type: 
  Country: None (occurrence: None)
  Receive Date: 20090820
  Receipt Date: 20090804
  Transmission Date: 20100115
  Serious: No
  Sender: FDA-Public Use
  Company Number: 1-19405338

PATIENT
  Age: 38 Year
  Sex: Female
  Weight: 72.5755 kg

DRUGS (4)
  1. OVIDE [Suspect]
     Indication: LICE INFESTATION
     Dosage: 1 BOTTLE, ONCE, TOPICAL
     Route: 061
     Dates: start: 20090726, end: 20090726
  2. NORTRIPTYLINE HCL [Suspect]
     Dosage: 75 MG ONCE DAILY, ORAL
     Route: 048
  3. ALBUTEROL [Concomitant]
  4. MULTI-VITAMIN [Concomitant]

REACTIONS (10)
  - ASTHMA [None]
  - DANDRUFF [None]
  - DRUG INTERACTION [None]
  - DRY SKIN [None]
  - DYSGEUSIA [None]
  - PRURITUS [None]
  - RASH PAPULAR [None]
  - SKIN BURNING SENSATION [None]
  - SKIN IRRITATION [None]
  - SUNBURN [None]
